FAERS Safety Report 14814237 (Version 5)
Quarter: 2019Q1

REPORT INFORMATION
  Report Type: Report from Study
  Country: US (occurrence: US)
  Receive Date: 20180426
  Receipt Date: 20190218
  Transmission Date: 20190417
  Serious: Yes (Other)
  Sender: FDA-Public Use
  Company Number: US-ROCHE-2113351

PATIENT
  Age: 55 Year
  Sex: Male
  Weight: 90.8 kg

DRUGS (2)
  1. OCREVUS [Suspect]
     Active Substance: OCRELIZUMAB
     Indication: RELAPSING MULTIPLE SCLEROSIS
     Route: 042
     Dates: start: 20180110
  2. OCREVUS [Suspect]
     Active Substance: OCRELIZUMAB
     Route: 042
     Dates: start: 20180124

REACTIONS (6)
  - Rash [Recovered/Resolved]
  - Folliculitis [Recovered/Resolved]
  - Staphylococcal infection [Recovered/Resolved]
  - Staphylococcal infection [Recovered/Resolved]
  - Respiratory tract infection [Recovered/Resolved]
  - Skin infection [Not Recovered/Not Resolved]

NARRATIVE: CASE EVENT DATE: 201802
